FAERS Safety Report 20299741 (Version 1)
Quarter: 2022Q1

REPORT INFORMATION
  Report Type: Spontaneous
  Country: FR (occurrence: FR)
  Receive Date: 20220105
  Receipt Date: 20220105
  Transmission Date: 20220423
  Serious: Yes (Other)
  Sender: FDA-Public Use
  Company Number: FR-GLAXOSMITHKLINE-FR2021GSK254475

PATIENT
  Age: 64 Year
  Sex: Male

DRUGS (5)
  1. ACYCLOVIR [Suspect]
     Active Substance: ACYCLOVIR
     Indication: Meningoencephalitis herpetic
     Dosage: 10 MILLIGRAM/KILOGRAM, QD,10 MG/KG, 1D
     Route: 042
  2. GENTAMICIN [Concomitant]
     Active Substance: GENTAMICIN
     Indication: Meningoencephalitis herpetic
     Dosage: UNK
  3. AMOXICILLIN [Concomitant]
     Active Substance: AMOXICILLIN
     Indication: Meningoencephalitis herpetic
     Dosage: UNK
  4. FOSCARNET [Concomitant]
     Active Substance: FOSCARNET
     Indication: Meningoencephalitis herpetic
     Dosage: UNK
     Route: 042
  5. CEFTRIAXONE [Concomitant]
     Active Substance: CEFTRIAXONE
     Indication: Meningoencephalitis herpetic
     Dosage: UNK

REACTIONS (7)
  - Intracranial pressure increased [Recovered/Resolved]
  - Pathogen resistance [Recovered/Resolved]
  - Brain oedema [Recovered/Resolved]
  - Coma [Recovered/Resolved]
  - Angiopathy [Recovered/Resolved]
  - Drug resistance [Unknown]
  - Condition aggravated [Recovered/Resolved]
